FAERS Safety Report 18372185 (Version 1)
Quarter: 2020Q4

REPORT INFORMATION
  Report Type: Spontaneous
  Country: FR (occurrence: FR)
  Receive Date: 20201012
  Receipt Date: 20201012
  Transmission Date: 20210114
  Serious: Yes (Hospitalization)
  Sender: FDA-Public Use
  Company Number: NVSC2020FR269123

PATIENT
  Age: 75 Year
  Sex: Male

DRUGS (12)
  1. KARDEGIC [Concomitant]
     Active Substance: ASPIRIN DL-LYSINE
     Indication: PRODUCT USED FOR UNKNOWN INDICATION
     Dosage: 1 DF, QD ( POUDRE POUR SOLUTION BUVABLE EN SACHET)
     Route: 048
  2. ROCEPHINE [Suspect]
     Active Substance: CEFTRIAXONE SODIUM
     Indication: LUNG DISORDER
     Dosage: NON RENSEIGNEE
     Route: 048
     Dates: start: 20200325
  3. CEFTOLOZANE [Suspect]
     Active Substance: CEFTOLOZANE
     Indication: PNEUMONIA
     Dosage: NON RENSEIGN?E
     Route: 042
     Dates: start: 202004, end: 202004
  4. PARACETAMOL [Suspect]
     Active Substance: ACETAMINOPHEN
     Indication: CORONAVIRUS INFECTION
     Dosage: NON RENSEIGNEE
     Route: 048
     Dates: start: 202003, end: 20200331
  5. NEBIVOLOL. [Concomitant]
     Active Substance: NEBIVOLOL
     Indication: PRODUCT USED FOR UNKNOWN INDICATION
     Dosage: 5 MG, QD
     Route: 048
  6. PLAQUENIL [Suspect]
     Active Substance: HYDROXYCHLOROQUINE SULFATE
     Indication: CORONAVIRUS INFECTION
     Dosage: 3 DF, QD
     Route: 048
     Dates: start: 20200325, end: 20200331
  7. XATRAL [Concomitant]
     Active Substance: ALFUZOSIN
     Indication: PRODUCT USED FOR UNKNOWN INDICATION
     Dosage: 1 DF, QD (COMPRIM? ? LIB?RATION PROLONG?E)
     Route: 048
  8. VORICONAZOLE. [Suspect]
     Active Substance: VORICONAZOLE
     Indication: PNEUMONIA
     Dosage: NON RENSEIGN?E
     Route: 042
     Dates: start: 202004, end: 202004
  9. TAZOBACTAM [Suspect]
     Active Substance: TAZOBACTAM
     Indication: PNEUMONIA
     Dosage: NON RENSEIGN?E
     Route: 042
     Dates: start: 202004, end: 202004
  10. PRAVASTATIN SODIUM. [Concomitant]
     Active Substance: PRAVASTATIN SODIUM
     Indication: PRODUCT USED FOR UNKNOWN INDICATION
     Dosage: 10 MG, QD
     Route: 048
  11. CIPROFLOXACINE [Suspect]
     Active Substance: CIPROFLOXACIN
     Indication: PNEUMONIA
     Dosage: NON RENSEIGNEE
     Route: 042
     Dates: start: 202004, end: 202004
  12. ESIDREX [Concomitant]
     Active Substance: HYDROCHLOROTHIAZIDE
     Indication: PRODUCT USED FOR UNKNOWN INDICATION
     Dosage: 1 DF, QD
     Route: 048

REACTIONS (3)
  - Jaundice [Recovered/Resolved]
  - Cholestasis [Recovered/Resolved]
  - Hepatocellular injury [Recovered/Resolved]

NARRATIVE: CASE EVENT DATE: 20200331
